FAERS Safety Report 7769909-5 (Version None)
Quarter: 2011Q3

REPORT INFORMATION
  Report Type: 
  Country: None (occurrence: None)
  Receive Date: 20110922
  Receipt Date: 20110919
  Transmission Date: 20111222
  Serious: Yes (Hospitalization, Disabling)
  Sender: FDA-Public Use
  Company Number: US-GLAXOSMITHKLINE-A0855970A

PATIENT
  Age: 33 Year
  Sex: Female
  Weight: 52.3 kg

DRUGS (3)
  1. TYLENOL W/ CODEINE NO. 3 [Concomitant]
  2. LAMICTAL [Suspect]
     Indication: BIPOLAR DISORDER
     Route: 048
     Dates: end: 20060401
  3. LEXAPRO [Concomitant]

REACTIONS (7)
  - INJURY [None]
  - HYPERSENSITIVITY [None]
  - STEVENS-JOHNSON SYNDROME [None]
  - VAGINAL OBSTRUCTION [None]
  - TOXIC EPIDERMAL NECROLYSIS [None]
  - BLINDNESS [None]
  - MUCOUS MEMBRANE DISORDER [None]
